FAERS Safety Report 19467656 (Version 1)
Quarter: 2021Q2

REPORT INFORMATION
  Report Type: Spontaneous
  Country: US (occurrence: US)
  Receive Date: 20210626
  Receipt Date: 20210626
  Transmission Date: 20210717
  Serious: Yes (Death, Hospitalization)
  Sender: FDA-Public Use
  Company Number: None

PATIENT
  Age: 60 Year
  Sex: Female
  Weight: 103.5 kg

DRUGS (1)
  1. ASPIRIN. [Suspect]
     Active Substance: ASPIRIN
     Dates: end: 20200601

REACTIONS (21)
  - Fall [None]
  - Transfusion [None]
  - Disease recurrence [None]
  - Diverticulum intestinal [None]
  - Metastatic neoplasm [None]
  - Platelet transfusion [None]
  - Cardio-respiratory arrest [None]
  - Rectal haemorrhage [None]
  - Dyspnoea [None]
  - Diverticulitis [None]
  - Asthenia [None]
  - Urinary tract infection [None]
  - Clostridium difficile infection [None]
  - Tachycardia [None]
  - Pallor [None]
  - Gastrointestinal haemorrhage [None]
  - Ankle fracture [None]
  - Diarrhoea [None]
  - Hypotension [None]
  - Aspiration [None]
  - Thrombocytopenia [None]

NARRATIVE: CASE EVENT DATE: 20210618
